FAERS Safety Report 12458366 (Version 2)
Quarter: 2016Q2

REPORT INFORMATION
  Report Type: Report from Study
  Country: US (occurrence: US)
  Receive Date: 20160613
  Receipt Date: 20160615
  Transmission Date: 20160815
  Serious: Yes (Life-Threatening, Hospitalization)
  Sender: FDA-Public Use
  Company Number: US-ASTRAZENECA-2016SE61214

PATIENT
  Age: 55 Year
  Sex: Female
  Weight: 65.8 kg

DRUGS (10)
  1. TAMOXIFEN [Suspect]
     Active Substance: TAMOXIFEN
     Indication: BREAST CANCER FEMALE
     Route: 048
     Dates: start: 1995
  2. OMEPRAZOLE. [Suspect]
     Active Substance: OMEPRAZOLE
     Indication: GASTROINTESTINAL DISORDER
     Route: 048
     Dates: start: 1996
  3. FISH OIL [Concomitant]
     Active Substance: FISH OIL
     Dosage: 1200.0MG UNKNOWN
  4. LEVEMIR [Concomitant]
     Active Substance: INSULIN DETEMIR
  5. CINNAMON. [Concomitant]
     Active Substance: CINNAMON
     Dosage: 500.0MG UNKNOWN
  6. VITAMIN D3 [Concomitant]
     Active Substance: CHOLECALCIFEROL
     Dosage: 1000.0IU UNKNOWN
  7. CRESTOR [Suspect]
     Active Substance: ROSUVASTATIN CALCIUM
     Indication: PROPHYLAXIS
     Route: 048
     Dates: start: 201603
  8. BRILINTA [Suspect]
     Active Substance: TICAGRELOR
     Indication: MYOCARDIAL INFARCTION
     Route: 048
     Dates: start: 201603
  9. LOSARTAN. [Concomitant]
     Active Substance: LOSARTAN
  10. METOPROLOL TARTRATE. [Concomitant]
     Active Substance: METOPROLOL TARTRATE
     Indication: PROPHYLAXIS
     Dates: start: 2013

REACTIONS (12)
  - Myocardial infarction [Unknown]
  - Oral discomfort [Unknown]
  - Weight decreased [Unknown]
  - Adverse drug reaction [Unknown]
  - Vulvovaginal pruritus [Unknown]
  - Haemorrhage [Unknown]
  - Vulvovaginal burning sensation [Unknown]
  - Decreased appetite [Unknown]
  - Genital erythema [Unknown]
  - Laryngitis viral [Not Recovered/Not Resolved]
  - Speech disorder [Unknown]
  - Diabetes mellitus [Unknown]

NARRATIVE: CASE EVENT DATE: 1995
